FAERS Safety Report 9372875 (Version 1)
Quarter: 2013Q2

REPORT INFORMATION
  Report Type: Spontaneous
  Country: GB (occurrence: None)
  Receive Date: 20130614
  Receipt Date: 20130614
  Transmission Date: 20140414
  Serious: Yes (Other)
  Sender: FDA-Public Use
  Company Number: 2013036467

PATIENT
  Age: 52 Year
  Sex: Male

DRUGS (10)
  1. HIZENTRA [Suspect]
     Indication: IMMUNODEFICIENCY COMMON VARIABLE
     Route: 058
     Dates: start: 20130422
  2. ATORVASTATIN (ATORVASTATIN) [Concomitant]
  3. ADIZEM-XL (DILTIAZEM HYDROCHLORIDE) [Concomitant]
  4. CO-CODAMOL (PANADEINE CO) [Concomitant]
  5. INSULIN HUMAN INJECTION, ISOPHANE (INSULIN HUMAN INJECTION, ISOPHANE) [Concomitant]
  6. IRBESARTAN (IRBESARTAN) [Concomitant]
  7. METFORMIN (METFORMIN) [Concomitant]
  8. NEOCLARITYN (DESLORATADINE) [Concomitant]
  9. TEGRETOL (CARBAMAZEPINE) UNKNOWN [Concomitant]
  10. WARFARIN (WARFARIN) [Concomitant]

REACTIONS (3)
  - Joint swelling [None]
  - Pain [None]
  - Rash [None]
